FAERS Safety Report 9504777 (Version 1)
Quarter: 2013Q1

REPORT INFORMATION
  Report Type: Spontaneous
  Country: US (occurrence: None)
  Receive Date: 20130225
  Receipt Date: 20130225
  Transmission Date: 20140127
  Serious: Yes (Hospitalization)
  Sender: FDA-Public Use
  Company Number: 2012-280

PATIENT
  Sex: Male

DRUGS (1)
  1. PRIALT (ZICONOTIDE) INTRATHECAL INFUSION [Suspect]
     Dosage: ONCE AN HOUR
     Route: 037
     Dates: start: 201205, end: 201205

REACTIONS (1)
  - Mental disorder [None]
